FAERS Safety Report 20536574 (Version 1)
Quarter: 2022Q1

REPORT INFORMATION
  Report Type: Spontaneous
  Country: US (occurrence: None)
  Receive Date: 20220301
  Receipt Date: 20220301
  Transmission Date: 20220423
  Serious: No
  Sender: FDA-Public Use
  Company Number: None

PATIENT
  Sex: Male
  Weight: 85.28 kg

DRUGS (1)
  1. SUNITINIB [Suspect]
     Active Substance: SUNITINIB
     Indication: Renal cancer
     Dosage: FREQUENCY : DAILY;?
     Route: 048
     Dates: start: 20210928

REACTIONS (1)
  - Disease progression [None]
